FAERS Safety Report 7676352-6 (Version None)
Quarter: 2011Q3

REPORT INFORMATION
  Report Type: 
  Country: None (occurrence: None)
  Receive Date: 20110811
  Receipt Date: 20110809
  Transmission Date: 20111222
  Serious: No
  Sender: FDA-Public Use
  Company Number: US-PFIZER INC-2011176119

PATIENT
  Age: 67 Year
  Sex: Male

DRUGS (13)
  1. GABAPENTIN [Suspect]
     Dosage: 100 MG, 3X/DAY
     Dates: start: 20110101
  2. LISINOPRIL [Concomitant]
     Dosage: 10 MG, 2X/DAY
  3. COREG [Concomitant]
     Dosage: 3.125 MG, 2X/DAY
  4. GABAPENTIN [Suspect]
     Indication: NEUROPATHY PERIPHERAL
     Dosage: UNK
     Dates: end: 20110101
  5. CLONIDINE [Concomitant]
     Dosage: 0.1 MG, 2X/DAY
  6. OMEPRAZOLE [Concomitant]
     Dosage: 20 MG, DAILY
  7. WARFARIN [Concomitant]
     Dosage: 1 MG, DAILY
  8. LYRICA [Suspect]
  9. SIMVASTATIN [Concomitant]
     Dosage: 20 MG, DAILY
  10. TERAZOSIN [Concomitant]
     Dosage: 2 MG, 2X/DAY
  11. TEMAZEPAM [Concomitant]
     Dosage: 15 MG, DAILY
  12. LYRICA [Suspect]
     Indication: NEUROPATHY PERIPHERAL
     Dosage: 25 MG, 2X/DAY
     Route: 048
     Dates: start: 20110701, end: 20110101
  13. ALLOPURINOL [Concomitant]
     Dosage: 100 MG, 2X/DAY

REACTIONS (4)
  - SENSATION OF HEAVINESS [None]
  - FEELING ABNORMAL [None]
  - DRUG INEFFECTIVE [None]
  - HYPERTENSION [None]
